FAERS Safety Report 10965850 (Version 4)
Quarter: 2015Q2

REPORT INFORMATION
  Report Type: Report from Study
  Country: US (occurrence: US)
  Receive Date: 20150330
  Receipt Date: 20150514
  Transmission Date: 20150821
  Serious: Yes (Hospitalization)
  Sender: FDA-Public Use
  Company Number: US-UCBSA-2015009430

PATIENT
  Age: 0 Year
  Sex: Male
  Weight: 3.4 kg

DRUGS (14)
  1. FOLIC ACID. [Concomitant]
     Active Substance: FOLIC ACID
     Indication: CROHN^S DISEASE
     Dosage: 4.8 MG, UNK
     Route: 064
     Dates: start: 20140718, end: 20140831
  2. PERCOCET [Concomitant]
     Active Substance: ACETAMINOPHEN\OXYCODONE HYDROCHLORIDE
     Indication: PAIN
     Dosage: 4 MG, UNK
     Route: 064
     Dates: start: 20140810, end: 20141107
  3. DOXYLAMINE [Concomitant]
     Active Substance: DOXYLAMINE
     Indication: NAUSEA
     Dosage: 10 MG, ONCE DAILY (QD) AT BED TIME, IN COMBINATION WITH PYRIDOXINE
     Route: 064
     Dates: start: 20141103, end: 20150129
  4. PYRIDOXINE [Concomitant]
     Active Substance: PYRIDOXINE
     Indication: NAUSEA
     Dosage: 10 MG, ONCE DAILY (QD), IN COMBINATION WITH DOXYLAMINE
     Route: 064
     Dates: start: 20141103, end: 20150129
  5. ZOFRAN [Concomitant]
     Active Substance: ONDANSETRON HYDROCHLORIDE
     Dosage: 4 MG, EVERY 6 HOURS AS NEEDED
     Route: 048
     Dates: start: 201411, end: 20150312
  6. PRENATAL VITAMINS [Concomitant]
     Active Substance: VITAMINS
     Indication: PREGNANCY
     Dosage: BED TIME
     Route: 064
     Dates: start: 201407, end: 20150312
  7. MUCINEX [Concomitant]
     Active Substance: GUAIFENESIN
     Indication: NASAL CONGESTION
     Dosage: 1200 MG, 2X/DAY (BID)
     Route: 064
     Dates: start: 20150130, end: 20150215
  8. TYLENOL [Concomitant]
     Active Substance: ACETAMINOPHEN
     Indication: ABDOMINAL PAIN
     Dosage: 1000 MG, EVERY 6 HRS AS NEEDED
     Route: 064
     Dates: start: 2014, end: 20150312
  9. PROTONIX [Concomitant]
     Active Substance: PANTOPRAZOLE SODIUM
     Indication: DYSPEPSIA
     Dosage: 40 MG, ONCE DAILY (QD)
     Route: 064
     Dates: start: 20141229, end: 20150312
  10. CERTOLIZUMAB PEGOL CD [Suspect]
     Active Substance: CERTOLIZUMAB PEGOL
     Indication: CROHN^S DISEASE
     Dosage: 400 MG, EV 4 WEEKS
     Route: 064
     Dates: start: 20140814
  11. ZOFRAN [Concomitant]
     Active Substance: ONDANSETRON HYDROCHLORIDE
     Indication: NAUSEA
     Dosage: 4 MG, AS NEEDED (PRN), EVERY 6 HOURS
     Route: 064
     Dates: start: 20140701, end: 20141103
  12. ALLOPURINOL. [Concomitant]
     Active Substance: ALLOPURINOL
     Indication: PRODUCT USED FOR UNKNOWN INDICATION
     Dosage: 100 MG, UNK
     Route: 064
     Dates: start: 20131219, end: 2014
  13. PROMETHAZINE [Concomitant]
     Active Substance: PROMETHAZINE\PROMETHAZINE HYDROCHLORIDE
     Indication: NAUSEA
     Dosage: 25 MG, AS NEEDED (PRN)
     Route: 064
     Dates: start: 20140716, end: 20150312
  14. NORCO [Concomitant]
     Active Substance: ACETAMINOPHEN\HYDROCODONE BITARTRATE
     Indication: PAIN
     Dosage: 4 MG, UNK
     Route: 064
     Dates: end: 20140817

REACTIONS (3)
  - Infection [Recovered/Resolved]
  - Hypoglycaemia [Recovered/Resolved]
  - Foetal exposure during pregnancy [Unknown]

NARRATIVE: CASE EVENT DATE: 20140814
